FAERS Safety Report 20963932 (Version 1)
Quarter: 2022Q2

REPORT INFORMATION
  Report Type: Spontaneous
  Country: ES (occurrence: None)
  Receive Date: 20220615
  Receipt Date: 20220615
  Transmission Date: 20220721
  Serious: Yes (Life-Threatening)
  Sender: FDA-Public Use
  Company Number: None

PATIENT
  Age: 62 Year
  Sex: Male

DRUGS (13)
  1. LENVIMA [Suspect]
     Active Substance: LENVATINIB
     Indication: Hepatic cancer
     Dosage: ^2.0 COMP W/24H^ (DOSE UNKNOWN)
     Route: 048
     Dates: start: 20201116, end: 20220529
  2. GABAPENTINA ALTER [Concomitant]
     Indication: Anxiety
     Dosage: DOSE AND FREQUENCY UNKNOWN
     Route: 048
     Dates: start: 20211015
  3. ATROVENT [Concomitant]
     Active Substance: IPRATROPIUM BROMIDE
     Indication: Bronchitis
     Route: 050
     Dates: start: 20210323
  4. ENSTILAR [Concomitant]
     Active Substance: BETAMETHASONE DIPROPIONATE\CALCIPOTRIENE HYDRATE
     Indication: Dermatitis
     Route: 061
     Dates: start: 20201222
  5. ENALAPRIL BELMAC [Concomitant]
     Indication: Hepatic cancer
     Dosage: FREQUENCY UNKNOWN
     Route: 048
     Dates: start: 20220326
  6. ESOMEPRAZOL CINFA [Concomitant]
     Indication: Gastrooesophageal reflux disease
     Dosage: FREQUENCY UNKNOWN
     Route: 048
     Dates: start: 20170303
  7. CICLOPIROX OLAMINE [Concomitant]
     Active Substance: CICLOPIROX OLAMINE
     Indication: Dermatitis
     Dosage: 2.0 APPLY W/72 HOURS
     Route: 061
     Dates: start: 20210204
  8. QUETIAPINE FUMARATE [Concomitant]
     Active Substance: QUETIAPINE FUMARATE
     Indication: Depression
     Dosage: FREQUENCY UNKNOWN
     Route: 048
     Dates: start: 20201001
  9. ACETAMINOPHEN [Concomitant]
     Active Substance: ACETAMINOPHEN
     Indication: Anxiety
     Dosage: FREQUENCY UNKNOWN
     Route: 048
     Dates: start: 20200821
  10. VENLAFAXINE HYDROCHLORIDE [Concomitant]
     Active Substance: VENLAFAXINE HYDROCHLORIDE
     Indication: Anxiety
     Dosage: FREQUENCY UNKNOWN
     Route: 048
     Dates: start: 20190522
  11. ALDACTONE [Concomitant]
     Active Substance: SPIRONOLACTONE
     Indication: Product used for unknown indication
     Dosage: FREQUENCY UNKNOWN
     Route: 048
     Dates: start: 20211005
  12. CICLOPIROX OLAMINE [Concomitant]
     Active Substance: CICLOPIROX OLAMINE
     Indication: Product used for unknown indication
     Dosage: 2.0 APPLY W/72 HOURS
     Route: 061
     Dates: start: 20211216
  13. GELIDINA [Concomitant]
     Indication: Product used for unknown indication
     Route: 061
     Dates: start: 20211215

REACTIONS (1)
  - Acute coronary syndrome [Recovering/Resolving]

NARRATIVE: CASE EVENT DATE: 20220529
